FAERS Safety Report 4369072-7 (Version None)
Quarter: 2004Q2

REPORT INFORMATION
  Report Type: 
  Country: None (occurrence: None)
  Receive Date: 20040527
  Receipt Date: 20040512
  Transmission Date: 20050107
  Serious: Yes (Other)
  Sender: FDA-Public Use
  Company Number: US_0404102308

PATIENT
  Age: 57 Year
  Sex: Female
  Weight: 105 kg

DRUGS (3)
  1. FORTEO [Suspect]
     Indication: OSTEOPOROSIS
     Dosage: 20 UG/1 DAY
     Dates: start: 20040313
  2. PRINZIDE [Concomitant]
  3. LIPITOR [Concomitant]

REACTIONS (3)
  - CELLULITIS [None]
  - INCISION SITE ABSCESS [None]
  - STAPHYLOCOCCAL ABSCESS [None]
